FAERS Safety Report 7529736-0 (Version None)
Quarter: 2011Q2

REPORT INFORMATION
  Report Type: 
  Country: None (occurrence: None)
  Receive Date: 20110607
  Receipt Date: 20110530
  Transmission Date: 20111010
  Serious: Yes (Hospitalization)
  Sender: FDA-Public Use
  Company Number: B0724440A

PATIENT
  Sex: Female

DRUGS (1)
  1. HYCAMTIN [Suspect]
     Indication: OVARIAN CANCER
     Dosage: 1.5MGM2 TWICE PER DAY
     Route: 042
     Dates: start: 20110523, end: 20110525

REACTIONS (2)
  - DIARRHOEA [None]
  - ESCHERICHIA INFECTION [None]
